FAERS Safety Report 20609454 (Version 1)
Quarter: 2022Q1

REPORT INFORMATION
  Report Type: Spontaneous
  Country: HR (occurrence: HR)
  Receive Date: 20220318
  Receipt Date: 20220318
  Transmission Date: 20220423
  Serious: Yes (Other)
  Sender: FDA-Public Use
  Company Number: HR-JNJFOC-20200516209

PATIENT
  Age: 47 Year
  Sex: Female
  Weight: 67 kg

DRUGS (9)
  1. SIMPONI [Suspect]
     Active Substance: GOLIMUMAB
     Indication: Psoriatic arthropathy
     Route: 058
     Dates: start: 20130222
  2. METHOTREXATE [Concomitant]
     Active Substance: METHOTREXATE
     Indication: Psoriatic arthropathy
     Route: 048
     Dates: start: 201010
  3. METHOTREXATE [Concomitant]
     Active Substance: METHOTREXATE
     Route: 051
  4. Folacin [Concomitant]
     Route: 065
  5. CONTROLOC [Concomitant]
     Active Substance: PANTOPRAZOLE SODIUM
  6. ACETAMINOPHEN [Concomitant]
     Active Substance: ACETAMINOPHEN
     Dosage: UP TO 6 TABLETS AS NEEDED
  7. DIAZEPAM [Concomitant]
     Active Substance: DIAZEPAM
  8. KETOPROFEN [Concomitant]
     Active Substance: KETOPROFEN
  9. KETOPROFEN [Concomitant]
     Active Substance: KETOPROFEN
     Route: 061

REACTIONS (3)
  - Psoriatic arthropathy [Unknown]
  - Ligament sprain [Unknown]
  - Asymptomatic COVID-19 [Unknown]

NARRATIVE: CASE EVENT DATE: 20200101
